FAERS Safety Report 4769816-6 (Version None)
Quarter: 2005Q3

REPORT INFORMATION
  Report Type: 
  Country: None (occurrence: None)
  Receive Date: 20050912
  Receipt Date: 20050628
  Transmission Date: 20060218
  Serious: Yes (Hospitalization)
  Sender: FDA-Public Use
  Company Number: 2005-01392

PATIENT
  Age: 80 Year
  Sex: Male

DRUGS (1)
  1. VELCADE [Suspect]

REACTIONS (2)
  - HYPERKALAEMIA [None]
  - RASH GENERALISED [None]
